FAERS Safety Report 17964318 (Version 1)
Quarter: 2020Q2

REPORT INFORMATION
  Report Type: Spontaneous
  Country: FR (occurrence: FR)
  Receive Date: 20200630
  Receipt Date: 20200630
  Transmission Date: 20200714
  Serious: Yes (Hospitalization)
  Sender: FDA-Public Use
  Company Number: FR-ELI_LILLY_AND_COMPANY-FR202006011656

PATIENT
  Age: 74 Year
  Sex: Female
  Weight: 64.9 kg

DRUGS (2)
  1. NORSET [Concomitant]
     Active Substance: MIRTAZAPINE
     Indication: AGITATION
     Route: 048
     Dates: start: 201711, end: 20180208
  2. ZYPREXA [Suspect]
     Active Substance: OLANZAPINE
     Indication: AGITATION
     Route: 048
     Dates: start: 20180202, end: 20180206

REACTIONS (1)
  - Pulmonary embolism [Recovering/Resolving]

NARRATIVE: CASE EVENT DATE: 20180206
